FAERS Safety Report 9426832 (Version 1)
Quarter: 2013Q3

REPORT INFORMATION
  Report Type: Spontaneous
  Country: US (occurrence: US)
  Receive Date: 20130730
  Receipt Date: 20130730
  Transmission Date: 20140515
  Serious: No
  Sender: FDA-Public Use
  Company Number: US-SANOFI-AVENTIS-2013SA003310

PATIENT
  Age: 45 Year
  Sex: Male

DRUGS (2)
  1. AMBIEN CR [Suspect]
  2. LUNESTA [Concomitant]

REACTIONS (1)
  - Constipation [Unknown]
